FAERS Safety Report 6440104-5 (Version None)
Quarter: 2009Q4

REPORT INFORMATION
  Report Type: 
  Country: None (occurrence: None)
  Receive Date: 20091113
  Receipt Date: 20081211
  Transmission Date: 20100525
  Serious: No
  Sender: FDA-Public Use
  Company Number: A0754604A

PATIENT
  Age: 55 Year
  Sex: Female

DRUGS (6)
  1. COREG [Suspect]
     Indication: HYPERTENSION
     Dosage: 25MG PER DAY
     Route: 048
     Dates: start: 20020101
  2. DIOVAN HCT [Concomitant]
  3. PREVACID [Concomitant]
  4. AMITRIPTYLINE HCL [Concomitant]
  5. ZETIA [Concomitant]
  6. SYNTHROID [Concomitant]

REACTIONS (3)
  - BLOOD PRESSURE INCREASED [None]
  - DRUG INEFFECTIVE [None]
  - PRODUCT QUALITY ISSUE [None]
